FAERS Safety Report 18670210 (Version 1)
Quarter: 2020Q4

REPORT INFORMATION
  Report Type: Spontaneous
  Country: CN (occurrence: CN)
  Receive Date: 20201228
  Receipt Date: 20201228
  Transmission Date: 20210114
  Serious: Yes (Other)
  Sender: FDA-Public Use
  Company Number: CN-PFIZER INC-2020508717

PATIENT
  Age: 8 Year
  Sex: Female
  Weight: 37.5 kg

DRUGS (2)
  1. CEFOPERAZONE SODIUM [Suspect]
     Active Substance: CEFOPERAZONE SODIUM
     Indication: TONSILLITIS
     Dosage: 1.2 G, 2X/DAY
     Route: 041
     Dates: start: 20201209, end: 20201210
  2. SODIUM CHLORIDE. [Concomitant]
     Active Substance: SODIUM CHLORIDE
     Indication: VEHICLE SOLUTION USE
     Dosage: 100 ML, 2X/DAY
     Dates: start: 20201209, end: 20201210

REACTIONS (4)
  - Heart rate increased [Recovering/Resolving]
  - Heart sounds abnormal [Recovering/Resolving]
  - Cough [Recovering/Resolving]
  - Oropharyngeal discomfort [Recovering/Resolving]

NARRATIVE: CASE EVENT DATE: 20201210
